FAERS Safety Report 5530068-0 (Version None)
Quarter: 2007Q4

REPORT INFORMATION
  Report Type: 
  Country: None (occurrence: None)
  Receive Date: 20071119
  Receipt Date: 20071015
  Transmission Date: 20080405
  Serious: No
  Sender: FDA-Public Use
  Company Number: TPA2007A02114

PATIENT
  Age: 85 Year
  Sex: Female

DRUGS (1)
  1. ROZEREM [Suspect]
     Indication: INITIAL INSOMNIA
     Dosage: 8 MG, HS, PER ORAL
     Route: 048
     Dates: start: 20070101, end: 20070101

REACTIONS (2)
  - FEELING ABNORMAL [None]
  - INITIAL INSOMNIA [None]
